FAERS Safety Report 7937056-5 (Version None)
Quarter: 2011Q4

REPORT INFORMATION
  Report Type: 
  Country: None (occurrence: None)
  Receive Date: 20111123
  Receipt Date: 20111007
  Transmission Date: 20120403
  Serious: Yes (Hospitalization)
  Sender: FDA-Public Use
  Company Number: US-ROCHE-794544

PATIENT
  Age: 62 Year
  Sex: Male
  Weight: 86.4 kg

DRUGS (12)
  1. ATENOLOL [Concomitant]
     Route: 048
  2. METFORMIN [Concomitant]
     Route: 048
  3. SELENIUM [Concomitant]
     Route: 048
  4. AVASTIN [Suspect]
     Indication: MALIGNANT MELANOMA
     Dosage: OFF STUDY: 5 JULY 2011
     Route: 042
     Dates: start: 20110524, end: 20110614
  5. LISINOPRIL [Concomitant]
     Route: 048
  6. NASONEX [Concomitant]
     Dosage: 2 SPRAY NAS QD
  7. OMEPRAZOLE [Concomitant]
     Route: 048
  8. IPILIMUMAB [Suspect]
     Indication: MALIGNANT MELANOMA
     Dosage: FREQUENCY: Q3WEEKS X4: OFF STUDY: 5 JULY 2011
     Route: 042
     Dates: start: 20110524, end: 20110614
  9. VITAMIN B COMPLEX CAP [Concomitant]
  10. AMLODIPINE [Concomitant]
     Route: 048
  11. DEXAMETHASONE [Concomitant]
     Route: 048
  12. PRAVASTATIN [Concomitant]

REACTIONS (1)
  - SPINAL CORD COMPRESSION [None]
